FAERS Safety Report 5422168-0 (Version None)
Quarter: 2007Q3

REPORT INFORMATION
  Report Type: 
  Country: None (occurrence: None)
  Receive Date: 20070821
  Receipt Date: 20070821
  Transmission Date: 20080115
  Serious: Yes (Hospitalization, Other)
  Sender: FDA-Public Use
  Company Number: None

PATIENT
  Age: 62 Year
  Sex: Male

DRUGS (13)
  1. CORICIDIN [Suspect]
     Indication: POSTNASAL DRIP
     Dosage: PO
     Route: 048
     Dates: start: 20070726, end: 20070727
  2. NORPACE [Concomitant]
  3. VERAPAMIL [Concomitant]
  4. TOPROL-XL [Concomitant]
  5. SINGULAIR [Concomitant]
  6. VITAMIN CAP [Concomitant]
  7. VITAMIN B-12 [Concomitant]
  8. BENZONATATE [Concomitant]
  9. PROTONIX [Concomitant]
  10. XOPENEX [Concomitant]
  11. TYLENOL [Concomitant]
  12. SILDENAFIL CITRATE [Concomitant]
  13. ZYRTEC [Concomitant]

REACTIONS (5)
  - ASTHENIA [None]
  - HEART RATE DECREASED [None]
  - HYPOTENSION [None]
  - PULMONARY OEDEMA [None]
  - SYNCOPE [None]
